FAERS Safety Report 5880884-0 (Version None)
Quarter: 2008Q3

REPORT INFORMATION
  Report Type: 
  Country: None (occurrence: None)
  Receive Date: 20080912
  Receipt Date: 20080605
  Transmission Date: 20090109
  Serious: No
  Sender: FDA-Public Use
  Company Number: US-ABBOTT-08P-163-0456980-00

PATIENT
  Sex: Female
  Weight: 35.412 kg

DRUGS (5)
  1. HUMIRA [Suspect]
     Indication: COLITIS ULCERATIVE
     Route: 058
     Dates: start: 20080520
  2. SULFASALAZINE [Concomitant]
     Indication: COLITIS ULCERATIVE
     Route: 048
  3. MONTELUKAST SODIUM [Concomitant]
     Indication: DRUG USE FOR UNKNOWN INDICATION
     Route: 048
  4. FOLIC ACID [Concomitant]
     Indication: VITAMIN SUPPLEMENTATION
     Route: 048
  5. PREDNISONE TAB [Concomitant]
     Indication: COLITIS ULCERATIVE
     Route: 048

REACTIONS (1)
  - ACCIDENTAL EXPOSURE [None]
